FAERS Safety Report 10648068 (Version 1)
Quarter: 2014Q4

REPORT INFORMATION
  Report Type: Spontaneous
  Country: GB (occurrence: GB)
  Receive Date: 20141212
  Receipt Date: 20141212
  Transmission Date: 20150529
  Serious: Yes (Death, Other)
  Sender: FDA-Public Use
  Company Number: GB-CIPLA LTD.-2014GB02353

PATIENT

DRUGS (7)
  1. TOPOTECAN [Suspect]
     Active Substance: TOPOTECAN\TOPOTECAN HYDROCHLORIDE
     Indication: GERM CELL CANCER
     Dosage: 10 MG/M2 ON D1, D2 AND D3
  2. THIOTEPA. [Suspect]
     Active Substance: THIOTEPA
     Indication: GERM CELL CANCER
     Dosage: 125MG/M2/DAY CONTINUOUS INFUSION ON D1 AND D4
  3. FILGRASTIM [Concomitant]
     Active Substance: FILGRASTIM
     Dosage: 300MCG/DAY WAS GIVEN ON ALTERNATE DAYS FROM DAY 2 TO DAY 14
  4. PACLITAXEL. [Suspect]
     Active Substance: PACLITAXEL
     Indication: GERM CELL CANCER
     Dosage: 80 MG/M2 ADMINISTERED ON D1, D8 AND D15
  5. IRINOTECAN [Suspect]
     Active Substance: IRINOTECAN
     Indication: GERM CELL CANCER
     Dosage: 200MG/M2 3-WEEKLY REGIMEN
  6. CARBOPLATIN. [Suspect]
     Active Substance: CARBOPLATIN
     Indication: GERM CELL CANCER
     Dosage: AUC 7 FOLLOWED 12 HOURS LATER BY TOPOTECAN DOSE
  7. OXALIPLATIN. [Suspect]
     Active Substance: OXALIPLATIN
     Indication: GERM CELL CANCER
     Dosage: 100MG/M2, 3 WEEKLY REGIMEN GIVEN ON D1

REACTIONS (2)
  - Hepatic failure [Fatal]
  - Fungal infection [Fatal]
